FAERS Safety Report 5593482-3 (Version None)
Quarter: 2007Q4

REPORT INFORMATION
  Report Type: 
  Country: None (occurrence: None)
  Receive Date: 20071218
  Receipt Date: 20071001
  Transmission Date: 20080405
  Serious: Yes (Hospitalization, Other)
  Sender: FDA-Public Use
  Company Number: 2005110009

PATIENT
  Age: 70 Year
  Sex: Male
  Weight: 88.5 kg

DRUGS (11)
  1. BEXTRA [Suspect]
     Indication: ARTHRITIS
     Dosage: 10 MG (10 MG,1 IN 1 D),ORAL
     Route: 048
     Dates: start: 20021001, end: 20041001
  2. BEXTRA [Suspect]
     Indication: INFLAMMATION
     Dosage: 10 MG (10 MG,1 IN 1 D),ORAL
     Route: 048
     Dates: start: 20021001, end: 20041001
  3. BEXTRA [Suspect]
     Indication: PAIN
     Dosage: 10 MG (10 MG,1 IN 1 D),ORAL
     Route: 048
     Dates: start: 20021001, end: 20041001
  4. CELEBREX [Concomitant]
  5. VIOXX [Concomitant]
  6. ADVIL [Concomitant]
  7. ALEVE [Concomitant]
  8. CODEINE SUL TAB [Concomitant]
  9. OXYCONTIN [Concomitant]
  10. PERCOCET [Concomitant]
  11. ACETAMINOPHEN [Concomitant]

REACTIONS (1)
  - MYOCARDIAL INFARCTION [None]
